FAERS Safety Report 5919108-4 (Version None)
Quarter: 2008Q4

REPORT INFORMATION
  Report Type: 
  Country: None (occurrence: None)
  Receive Date: 20081014
  Receipt Date: 20081014
  Transmission Date: 20090506
  Serious: Yes (Hospitalization)
  Sender: FDA-Public Use
  Company Number: None

PATIENT
  Age: 65 Year
  Sex: Male

DRUGS (1)
  1. CETUXIMAB [Suspect]
     Indication: SQUAMOUS CELL CARCINOMA
     Dosage: 425 MG OTHER IV
     Route: 042
     Dates: start: 20080827

REACTIONS (6)
  - CELLULITIS [None]
  - DERMATITIS CONTACT [None]
  - DRY SKIN [None]
  - EXCORIATION [None]
  - RASH [None]
  - STAPHYLOCOCCAL INFECTION [None]
